FAERS Safety Report 20692588 (Version 2)
Quarter: 2022Q2

REPORT INFORMATION
  Report Type: Spontaneous
  Country: PL (occurrence: PL)
  Receive Date: 20220409
  Receipt Date: 20220516
  Transmission Date: 20220720
  Serious: Yes (Hospitalization, Other)
  Sender: FDA-Public Use
  Company Number: PL-009507513-2204POL002624

PATIENT
  Age: 45 Year
  Sex: Male

DRUGS (7)
  1. MOLNUPIRAVIR [Suspect]
     Active Substance: MOLNUPIRAVIR
     Dosage: 800 MILLIGRAM, BID
     Route: 048
     Dates: start: 20220322, end: 20220324
  2. TORSEMIDE [Concomitant]
     Active Substance: TORSEMIDE
     Indication: Cardiac failure
     Dosage: 10 MILLIGRAM, DAILY
     Route: 048
     Dates: start: 20220317
  3. SPIRONOLACTONE [Concomitant]
     Active Substance: SPIRONOLACTONE
     Indication: Cardiac failure
     Dosage: 25 MILLIGRAM, DAILY
     Route: 048
     Dates: start: 20220317
  4. EMPAGLIFLOZIN [Concomitant]
     Active Substance: EMPAGLIFLOZIN
     Indication: Cardiac failure
     Dosage: 10 MILLIGRAM, DAILY
     Route: 048
     Dates: start: 20220317
  5. BISOPROLOL [Concomitant]
     Active Substance: BISOPROLOL
     Indication: Cardiac failure
     Dosage: 3.75 MILLIGRAM, DAILY
     Route: 048
     Dates: start: 20220317
  6. PERINDOPRIL [Concomitant]
     Active Substance: PERINDOPRIL
     Indication: Cardiac failure
     Dosage: 5 MILLIGRAM, DAILY
     Route: 048
     Dates: start: 20220317
  7. ASPIRIN [Concomitant]
     Active Substance: ASPIRIN
     Indication: Compartment syndrome
     Dosage: 75 MILLIGRAM, DAILY
     Route: 048
     Dates: start: 20220317

REACTIONS (3)
  - Ischaemic stroke [Recovered/Resolved]
  - Cerebral microangiopathy [Unknown]
  - Central nervous system lesion [Unknown]

NARRATIVE: CASE EVENT DATE: 20220324
